FAERS Safety Report 5170572-0 (Version None)
Quarter: 2006Q4

REPORT INFORMATION
  Report Type: 
  Country: None (occurrence: None)
  Receive Date: 20061205
  Receipt Date: 20060316
  Transmission Date: 20070319
  Serious: Yes (Hospitalization)
  Sender: FDA-Public Use
  Company Number: 2006025632

PATIENT
  Age: 53 Year
  Sex: Male

DRUGS (14)
  1. LINEZOLID [Suspect]
     Indication: WOUND INFECTION
     Dosage: 1200 MG 9600 MG, 2 IN 1 D), ORAL
     Route: 048
  2. RENAGEL [Concomitant]
  3. POTASSIUM CHLORIDE [Concomitant]
  4. DIURAL (FUROSEMIDE) [Concomitant]
  5. TENORMIN [Concomitant]
  6. ZOCOR [Concomitant]
  7. DUROFERON (FERROUS SUFLATE) [Concomitant]
  8. NATRON (SODIUM BICARBONATE) [Concomitant]
  9. ARANESP [Concomitant]
  10. ALBYL-E (ACETYLSALICYLIC ACID, MAGNESIUM OXIDE) [Concomitant]
  11. NEXIUM [Concomitant]
  12. PLAVIX [Concomitant]
  13. ROCALTROL [Concomitant]
  14. INSULIN (INSULIN) [Concomitant]

REACTIONS (6)
  - ALOPECIA [None]
  - DIARRHOEA [None]
  - FLUID RETENTION [None]
  - HAEMOGLOBIN DECREASED [None]
  - HYPOTRICHOSIS [None]
  - PIGMENTATION DISORDER [None]
